FAERS Safety Report 16721430 (Version 1)
Quarter: 2019Q3

REPORT INFORMATION
  Report Type: Spontaneous
  Country: NL (occurrence: NL)
  Receive Date: 20190820
  Receipt Date: 20190820
  Transmission Date: 20191005
  Serious: Yes (Other)
  Sender: FDA-Public Use
  Company Number: NL-TEVA-2019-NL-1093414

PATIENT
  Age: 64 Year
  Sex: Female
  Weight: 68 kg

DRUGS (2)
  1. IN COMBINATIE MET LOZARTAN, OOK TEGEN HOGE BLOEDDRUK. [Concomitant]
  2. HYDROCHLOORTHIAZIDE TABLET, 12,5 MG (MILLIGRAM) [Suspect]
     Active Substance: HYDROCHLOROTHIAZIDE
     Indication: HYPERTENSION
     Dosage: 1 DOSAGE FORMS DAILY; ONCE A DAY
     Dates: start: 20050601

REACTIONS (1)
  - Basal cell carcinoma [Recovered/Resolved]

NARRATIVE: CASE EVENT DATE: 20150101
